FAERS Safety Report 23516976 (Version 1)
Quarter: 2024Q1

REPORT INFORMATION
  Report Type: Spontaneous
  Country: US (occurrence: None)
  Receive Date: 20240212
  Receipt Date: 20240212
  Transmission Date: 20240409
  Serious: Yes (Disabling, Congenital Anomaly, Other)
  Sender: FDA-Public Use
  Company Number: None

PATIENT
  Age: 23 Year
  Sex: Female
  Weight: 81 kg

DRUGS (1)
  1. METHADONE [Suspect]
     Active Substance: METHADONE HYDROCHLORIDE
     Indication: Drug dependence
     Dates: start: 20160615

REACTIONS (1)
  - Dental caries [None]

NARRATIVE: CASE EVENT DATE: 20200220
